FAERS Safety Report 6734758-3 (Version None)
Quarter: 2010Q2

REPORT INFORMATION
  Report Type: 
  Country: None (occurrence: None)
  Receive Date: 20100520
  Receipt Date: 20100507
  Transmission Date: 20101027
  Serious: Yes (Hospitalization)
  Sender: FDA-Public Use
  Company Number: DE-MYLANLABS-2010S1008109

PATIENT
  Age: 81 Year
  Sex: Female
  Weight: 82 kg

DRUGS (4)
  1. CARVEDILOL [Suspect]
     Indication: HYPERTENSION
     Route: 048
     Dates: start: 20030317
  2. TELMISARTAN AND HYDROCHLOROTHIAZIDE [Suspect]
     Indication: HYPERTENSION
     Dosage: EINE DF ENTHALT: 12,5 MG HYDROCHLOROTHIAZIDE/80 MG TELMISARTAN
     Route: 048
     Dates: start: 20060101
  3. URAPIDIL [Suspect]
     Indication: HYPERTENSION
     Route: 048
     Dates: start: 20061222
  4. MOXONIDINE [Concomitant]
     Indication: HYPERTENSION
     Dosage: FRUHMORGENS: 0,2 MG, ABENDS: 0,4 MG
     Route: 048
     Dates: start: 20030317

REACTIONS (1)
  - FALSE POSITIVE LABORATORY RESULT [None]
